FAERS Safety Report 24720685 (Version 2)
Quarter: 2024Q4

REPORT INFORMATION
  Report Type: Spontaneous
  Country: JP (occurrence: JP)
  Receive Date: 20241211
  Receipt Date: 20241217
  Transmission Date: 20250114
  Serious: Yes (Other)
  Sender: ABBVIE
  Company Number: JP-ABBVIE-5656920

PATIENT
  Age: 58 Year
  Sex: Female

DRUGS (8)
  1. FOSCARBIDOPA\FOSLEVODOPA [Suspect]
     Active Substance: FOSCARBIDOPA\FOSLEVODOPA
     Indication: Parkinson^s disease
     Dosage: DURING DAY: STANDARD: 0.35 ML/H.
     Route: 058
     Dates: start: 20240217, end: 20240229
  2. FOSCARBIDOPA\FOSLEVODOPA [Suspect]
     Active Substance: FOSCARBIDOPA\FOSLEVODOPA
     Indication: Parkinson^s disease
     Dosage: DURING DAY: 0.32 ML/H, DURING NIGHT: 0.15 ML/H?LAST ADMIN DATE FEB 2024
     Route: 058
     Dates: start: 20240208
  3. FOSCARBIDOPA\FOSLEVODOPA [Suspect]
     Active Substance: FOSCARBIDOPA\FOSLEVODOPA
     Indication: Parkinson^s disease
     Dosage: DURING DAY: STANDARD: 0.33 ML/H?LAST ADMIN DATE FEB 2024
     Route: 058
     Dates: start: 202402
  4. FOSCARBIDOPA\FOSLEVODOPA [Suspect]
     Active Substance: FOSCARBIDOPA\FOSLEVODOPA
     Indication: Parkinson^s disease
     Dosage: DURING DAY: STANDARD: 0.31 ML/H, DURING NIGHT: 0.15 ML/H?LAST ADMIN DATE FEB 2024
     Route: 058
     Dates: start: 202402
  5. ZONISAMIDE [Concomitant]
     Active Substance: ZONISAMIDE
     Indication: Parkinson^s disease
     Route: 048
  6. ROPINIROLE HYDROCHLORIDE [Concomitant]
     Active Substance: ROPINIROLE HYDROCHLORIDE
     Indication: Parkinson^s disease
     Route: 062
  7. AMANTADINE HYDROCHLORIDE [Concomitant]
     Active Substance: AMANTADINE HYDROCHLORIDE
     Indication: Parkinson^s disease
     Route: 048
  8. CARBIDOPA\LEVODOPA [Concomitant]
     Active Substance: CARBIDOPA\LEVODOPA
     Indication: Parkinson^s disease
     Route: 048

REACTIONS (11)
  - Vocal cord dysfunction [Recovered/Resolved]
  - Hallucination [Recovering/Resolving]
  - Hallucination, auditory [Recovering/Resolving]
  - Mobility decreased [Unknown]
  - Catatonia [Recovering/Resolving]
  - Deep vein thrombosis [Recovered/Resolved]
  - Dyskinesia [Unknown]
  - Delirium [Unknown]
  - Pulmonary embolism [Recovered/Resolved]
  - Moaning [Unknown]
  - Dyspnoea [Unknown]

NARRATIVE: CASE EVENT DATE: 20240218
